FAERS Safety Report 5372179-9 (Version None)
Quarter: 2007Q2

REPORT INFORMATION
  Report Type: 
  Country: None (occurrence: None)
  Receive Date: 20070627
  Receipt Date: 20070621
  Transmission Date: 20071010
  Serious: Yes (Death)
  Sender: FDA-Public Use
  Company Number: A0659237A

PATIENT
  Age: 88 Year
  Sex: Male

DRUGS (3)
  1. COREG [Suspect]
     Indication: DRUG USE FOR UNKNOWN INDICATION
     Route: 048
  2. ANTIBIOTIC [Concomitant]
  3. COUMADIN [Concomitant]

REACTIONS (3)
  - DEATH [None]
  - LOWER RESPIRATORY TRACT INFECTION [None]
  - RENAL FAILURE [None]
